FAERS Safety Report 15266634 (Version 1)
Quarter: 2018Q3

REPORT INFORMATION
  Report Type: Report from Study
  Country: US (occurrence: US)
  Receive Date: 20180810
  Receipt Date: 20180810
  Transmission Date: 20181010
  Serious: No
  Sender: FDA-Public Use
  Company Number: US-ALEXION PHARMACEUTICALS INC.-A201810233

PATIENT
  Age: 84 Year
  Sex: Male

DRUGS (1)
  1. SOLIRIS [Suspect]
     Active Substance: ECULIZUMAB
     Indication: MYASTHENIA GRAVIS
     Dosage: 900 MG, QW, INDUCTION DOSING
     Route: 042
     Dates: start: 20180711

REACTIONS (4)
  - Haematocrit decreased [Unknown]
  - White blood cell count decreased [Unknown]
  - Fibrin D dimer increased [Unknown]
  - Red cell distribution width decreased [Unknown]

NARRATIVE: CASE EVENT DATE: 20180801
